FAERS Safety Report 5370184-X (Version None)
Quarter: 2007Q2

REPORT INFORMATION
  Report Type: 
  Country: None (occurrence: None)
  Receive Date: 20070626
  Receipt Date: 20070621
  Transmission Date: 20071010
  Serious: Yes (Death, Hospitalization, Other)
  Sender: FDA-Public Use
  Company Number: US-NOVOPROD-264819

PATIENT
  Sex: Male

DRUGS (3)
  1. NOVOSEVEN [Suspect]
     Indication: TRAUMATIC HAEMORRHAGE
     Dosage: 16 VIALS
     Route: 042
     Dates: start: 20060831, end: 20060903
  2. BLOOD CELLS, PACKED HUMAN [Concomitant]
     Indication: TRAUMATIC HAEMORRHAGE
     Dosage: 20 U, UNK
  3. PLATELETS [Concomitant]
     Indication: TRAUMATIC HAEMORRHAGE

REACTIONS (1)
  - HAEMORRHAGE [None]
